FAERS Safety Report 4689217-9 (Version None)
Quarter: 2005Q2

REPORT INFORMATION
  Report Type: 
  Country: None (occurrence: None)
  Receive Date: 20050608
  Receipt Date: 20050304
  Transmission Date: 20051028
  Serious: No
  Sender: FDA-Public Use
  Company Number: 2005-BP-03531BP

PATIENT
  Age: 45 Year
  Sex: Female
  Weight: 167.8 kg

DRUGS (1)
  1. SPIRIVA [Suspect]
     Dosage: (18 MCG)
     Dates: start: 20050222, end: 20050301

REACTIONS (2)
  - BLOOD URINE PRESENT [None]
  - DYSURIA [None]
